FAERS Safety Report 4806977-4 (Version None)
Quarter: 2005Q4

REPORT INFORMATION
  Report Type: 
  Country: None (occurrence: None)
  Receive Date: 20051019
  Receipt Date: 20050930
  Transmission Date: 20060501
  Serious: Yes (Hospitalization, Other)
  Sender: FDA-Public Use
  Company Number: EWC051046143

PATIENT
  Age: 72 Year
  Sex: Female
  Weight: 57 kg

DRUGS (9)
  1. FLUOXETINE                      (FLUOXETINE HYDROCHLOR [Suspect]
     Indication: DEPRESSION
     Dosage: 20 MG DAY
     Route: 048
     Dates: start: 20050201, end: 20050707
  2. TRAZODONE HCL [Concomitant]
  3. BALDRIANWURZEL [Concomitant]
  4. VALVERDE (VALERIANA OFFICINALIS EXTRACT) [Concomitant]
  5. SPAGYRIC ESSENCE [Concomitant]
  6. HYPERVAL [Concomitant]
  7. MADOPAR [Concomitant]
  8. ASPIRIN [Concomitant]
  9. ACTONEL [Concomitant]

REACTIONS (7)
  - ALANINE AMINOTRANSFERASE INCREASED [None]
  - ASPARTATE AMINOTRANSFERASE INCREASED [None]
  - DECREASED APPETITE [None]
  - GAMMA-GLUTAMYLTRANSFERASE INCREASED [None]
  - HEPATIC ENZYME INCREASED [None]
  - LIVER DISORDER [None]
  - NAUSEA [None]
